FAERS Safety Report 22159960 (Version 1)
Quarter: 2023Q1

REPORT INFORMATION
  Report Type: Spontaneous
  Country: US (occurrence: US)
  Receive Date: 20230331
  Receipt Date: 20230331
  Transmission Date: 20230417
  Serious: Yes (Hospitalization, Other)
  Sender: FDA-Public Use
  Company Number: US-BoehringerIngelheim-2023-BI-228630

PATIENT
  Age: 76 Year
  Sex: Male

DRUGS (3)
  1. JARDIANCE [Suspect]
     Active Substance: EMPAGLIFLOZIN
     Indication: Type 2 diabetes mellitus
     Route: 048
     Dates: start: 2019
  2. HUMULIN N [Concomitant]
     Active Substance: INSULIN HUMAN
     Indication: Type 2 diabetes mellitus
  3. HUMULIN R [Concomitant]
     Active Substance: INSULIN HUMAN
     Indication: Type 2 diabetes mellitus

REACTIONS (4)
  - Cerebrovascular accident [Recovered/Resolved]
  - Cerebrovascular accident [Recovered/Resolved]
  - Weight decreased [Recovered/Resolved]
  - Blood glucose decreased [Recovered/Resolved]

NARRATIVE: CASE EVENT DATE: 20210101
